FAERS Safety Report 26215766 (Version 1)
Quarter: 2025Q4

REPORT INFORMATION
  Report Type: Spontaneous
  Country: US (occurrence: US)
  Receive Date: 20251231
  Receipt Date: 20251231
  Transmission Date: 20260118
  Serious: Yes (Death, Other)
  Sender: BAXTER
  Company Number: US-MLMSERVICE-20251222-PI753686-00175-2

PATIENT
  Age: 64 Year
  Sex: Male

DRUGS (3)
  1. HEPARIN SODIUM [Suspect]
     Active Substance: HEPARIN SODIUM
     Indication: Anticoagulant therapy
     Dosage: UNFRACTIONATED HEPARIN INFUSION
     Route: 065
  2. METHYLPREDNISOLONE [Concomitant]
     Active Substance: METHYLPREDNISOLONE
     Indication: Vasculitis
     Dosage: HIGH DOSE
     Route: 065
  3. RITUXIMAB [Concomitant]
     Active Substance: RITUXIMAB
     Indication: Microscopic polyangiitis
     Dosage: UNK
     Route: 065

REACTIONS (3)
  - Intraventricular haemorrhage [Fatal]
  - Haemorrhagic transformation stroke [Fatal]
  - Haematuria [Recovered/Resolved]
